FAERS Safety Report 7427673-3 (Version None)
Quarter: 2011Q1

REPORT INFORMATION
  Report Type: 
  Country: None (occurrence: None)
  Receive Date: 20110302
  Receipt Date: 20101025
  Transmission Date: 20110831
  Serious: No
  Sender: FDA-Public Use
  Company Number: 009571

PATIENT
  Sex: Male
  Weight: 74.4 kg

DRUGS (5)
  1. ASACOL [Concomitant]
  2. CIMZIA [Suspect]
     Indication: CROHN'S DISEASE
     Dosage: (400 MG 1X/4 WEEKS SUBCUTANEOUS)
     Route: 058
     Dates: start: 20090203
  3. AZATHIOPRINE [Concomitant]
  4. OMEPRAZOLE [Concomitant]
  5. HYDROCODONE BITARTRATE [Concomitant]

REACTIONS (8)
  - HEADACHE [None]
  - MALAISE [None]
  - INJECTION SITE PAIN [None]
  - ARTHRALGIA [None]
  - DIPLOPIA [None]
  - ABDOMINAL HERNIA [None]
  - VISION BLURRED [None]
  - MYALGIA [None]
